FAERS Safety Report 6461871-0 (Version None)
Quarter: 2009Q4

REPORT INFORMATION
  Report Type: 
  Country: None (occurrence: None)
  Receive Date: 20091130
  Receipt Date: 20091120
  Transmission Date: 20100525
  Serious: Yes (Hospitalization)
  Sender: FDA-Public Use
  Company Number: PHHO2009FR14434

PATIENT
  Sex: Female
  Weight: 12 kg

DRUGS (3)
  1. ACZ885 ACZ+ [Suspect]
     Indication: CHRONIC INFANTILE NEUROLOGICAL CUTANEOUS AND ARTICULAR SYNDROME
     Dosage: 2 MG/KG
     Route: 042
     Dates: start: 20091023
  2. ACZ885 ACZ+ [Suspect]
     Dosage: 4 MG/KG
     Route: 042
     Dates: start: 20091030
  3. ACZ885 ACZ+ [Suspect]
     Dosage: 4 MG/KG
     Route: 042
     Dates: start: 20091106

REACTIONS (3)
  - BRONCHITIS [None]
  - INFLUENZA [None]
  - PYREXIA [None]
